FAERS Safety Report 9509891 (Version 1)
Quarter: 2013Q3

REPORT INFORMATION
  Report Type: Spontaneous
  Country: US (occurrence: US)
  Receive Date: 20130909
  Receipt Date: 20130909
  Transmission Date: 20140515
  Serious: Yes (Hospitalization)
  Sender: FDA-Public Use
  Company Number: US-BRISTOL-MYERS SQUIBB COMPANY-18827840

PATIENT
  Age: 15 Year
  Sex: Female

DRUGS (1)
  1. ABILIFY [Suspect]
     Dosage: INTER AND RESTARTED WITH 20MG/D

REACTIONS (1)
  - Suicide attempt [Unknown]
